FAERS Safety Report 6379150-9 (Version None)
Quarter: 2009Q3

REPORT INFORMATION
  Report Type: 
  Country: None (occurrence: None)
  Receive Date: 20090923
  Receipt Date: 20090923
  Transmission Date: 20100115
  Serious: Yes (Other)
  Sender: FDA-Public Use
  Company Number: None

PATIENT
  Age: 58 Year
  Sex: Male
  Weight: 71.6683 kg

DRUGS (2)
  1. ASTELIN [Suspect]
     Indication: MULTIPLE ALLERGIES
     Dosage: 1 SPRY PER NOSTRAL AT BEDTIME NASAL
     Route: 045
     Dates: start: 20050101, end: 20090922
  2. ASTEPRO [Suspect]
     Indication: MULTIPLE ALLERGIES
     Dosage: 1 SRPAY PER NOSTRAL AT BEDTIME NASAL
     Route: 045
     Dates: start: 20090701, end: 20090704

REACTIONS (5)
  - DIZZINESS [None]
  - MALAISE [None]
  - NAUSEA [None]
  - PRODUCT SUBSTITUTION ISSUE [None]
  - PRODUCT TASTE ABNORMAL [None]
